FAERS Safety Report 6540460-3 (Version None)
Quarter: 2010Q1

REPORT INFORMATION
  Report Type: 
  Country: None (occurrence: None)
  Receive Date: 20100113
  Receipt Date: 20100106
  Transmission Date: 20100710
  Serious: Yes (Death, Other)
  Sender: FDA-Public Use
  Company Number: 2010000062

PATIENT
  Age: 71 Year
  Sex: Female

DRUGS (1)
  1. ACTIQ [Suspect]
     Indication: CANCER PAIN
     Dates: end: 20090401

REACTIONS (1)
  - MALIGNANT NEOPLASM PROGRESSION [None]
